FAERS Safety Report 8921447 (Version 1)
Quarter: 2012Q4

REPORT INFORMATION
  Report Type: 
  Country: FR (occurrence: FR)
  Receive Date: 20121122
  Receipt Date: 20121122
  Transmission Date: 20130627
  Serious: Yes (Life-Threatening, Hospitalization, Other)
  Sender: FDA-Public Use
  Company Number: FR-009507513-1211FRA004121

PATIENT
  Age: 80 Year
  Sex: Female

DRUGS (6)
  1. INVANZ [Suspect]
     Dosage: 1 g, qd
     Route: 058
     Dates: start: 20120910, end: 20120915
  2. BISOPROLOL [Concomitant]
     Dosage: UNK
     Route: 048
  3. CRESTOR [Concomitant]
     Dosage: UNK
  4. LEVOTHYROX [Concomitant]
     Dosage: 100 pg, UNK
     Route: 048
  5. ARIXTRA [Concomitant]
     Dosage: 1 DF, qd
  6. PLAVIX [Concomitant]
     Dosage: 75 mg, qd
     Route: 048

REACTIONS (1)
  - Status epilepticus [Recovering/Resolving]
